FAERS Safety Report 25370026 (Version 3)
Quarter: 2025Q2

REPORT INFORMATION
  Report Type: Spontaneous
  Country: ES (occurrence: ES)
  Receive Date: 20250528
  Receipt Date: 20250617
  Transmission Date: 20250717
  Serious: Yes (Hospitalization, Other)
  Sender: PFIZER
  Company Number: ES-PFM-2025-02528

PATIENT
  Age: 49 Year
  Sex: Female

DRUGS (4)
  1. ENCORAFENIB [Suspect]
     Active Substance: ENCORAFENIB
     Indication: Lung adenocarcinoma stage IV
     Dosage: 450 MG, 1X/DAY (QD (1/DAY))
     Route: 065
     Dates: start: 20250312
  2. ENCORAFENIB [Suspect]
     Active Substance: ENCORAFENIB
     Indication: BRAF V600E mutation positive
  3. BINIMETINIB [Suspect]
     Active Substance: BINIMETINIB
     Indication: BRAF V600E mutation positive
     Dosage: 45 MG, 2X/DAY
     Route: 065
     Dates: start: 20250312
  4. BINIMETINIB [Suspect]
     Active Substance: BINIMETINIB
     Indication: Lung adenocarcinoma stage IV

REACTIONS (3)
  - Pyrexia [Unknown]
  - Acute phase reaction [Unknown]
  - Hepatic enzyme increased [Unknown]

NARRATIVE: CASE EVENT DATE: 20250326
